FAERS Safety Report 17009088 (Version 1)
Quarter: 2019Q4

REPORT INFORMATION
  Report Type: Report from Study
  Country: CL (occurrence: CL)
  Receive Date: 20191108
  Receipt Date: 20191108
  Transmission Date: 20200122
  Serious: Yes (Death, Other)
  Sender: FDA-Public Use
  Company Number: CL-BRISTOL-MYERS SQUIBB COMPANY-BMS-2019-103950

PATIENT
  Age: 52 Year
  Sex: Male

DRUGS (1)
  1. NIVOLUMAB [Suspect]
     Active Substance: NIVOLUMAB
     Indication: MALIGNANT MELANOMA
     Dosage: 1 DOSAGE FORM= 240 UNITS NOS, Q2WK
     Route: 065

REACTIONS (2)
  - Death [Fatal]
  - Mobility decreased [Unknown]

NARRATIVE: CASE EVENT DATE: 20190722
